FAERS Safety Report 19377872 (Version 1)
Quarter: 2021Q2

REPORT INFORMATION
  Report Type: Spontaneous
  Country: US (occurrence: US)
  Receive Date: 20210604
  Receipt Date: 20210604
  Transmission Date: 20210717
  Serious: No
  Sender: FDA-Public Use
  Company Number: US-BRAINTREE LABORATORIES, INC.-2021BTE00184

PATIENT
  Age: 68 Year
  Sex: Male
  Weight: 111.11 kg

DRUGS (2)
  1. ABOUT A DOZEN UNSPECIFIED MEDICATIONS [Concomitant]
  2. SUTAB [Suspect]
     Active Substance: MAGNESIUM SULFATE\POTASSIUM CHLORIDE\SODIUM SULFATE
     Indication: COLONOSCOPY
     Dosage: 12 TABLETS, 2X
     Dates: start: 2021, end: 2021

REACTIONS (1)
  - Gastric mucosa erythema [Unknown]

NARRATIVE: CASE EVENT DATE: 2021
